FAERS Safety Report 19241036 (Version 1)
Quarter: 2021Q2

REPORT INFORMATION
  Report Type: Spontaneous
  Country: PT (occurrence: PT)
  Receive Date: 20210511
  Receipt Date: 20210511
  Transmission Date: 20210717
  Serious: Yes (Hospitalization, Other)
  Sender: FDA-Public Use
  Company Number: PT-AKCEA THERAPEUTICS, INC.-2021IS001258

PATIENT
  Age: 74 Year
  Sex: Male

DRUGS (6)
  1. TEGSEDI [Suspect]
     Active Substance: INOTERSEN SODIUM
     Indication: HEREDITARY NEUROPATHIC AMYLOIDOSIS
     Route: 065
     Dates: start: 20200121, end: 20210303
  2. TEGSEDI [Suspect]
     Active Substance: INOTERSEN SODIUM
     Route: 065
     Dates: start: 20210318, end: 20210407
  3. DOMPERIDONE [Concomitant]
     Active Substance: DOMPERIDONE
     Route: 065
     Dates: start: 202102
  4. PREGABALIN. [Concomitant]
     Active Substance: PREGABALIN
     Route: 065
     Dates: start: 2017
  5. ISSD (INTEGRATED SYRINGE SAFETY DEVICE) [Suspect]
     Active Substance: DEVICE
  6. METFORMIN [Concomitant]
     Active Substance: METFORMIN HYDROCHLORIDE
     Route: 065
     Dates: start: 2015

REACTIONS (3)
  - Thrombocytopenia [Not Recovered/Not Resolved]
  - Platelet count decreased [Recovered/Resolved]
  - Cardiac failure [Unknown]

NARRATIVE: CASE EVENT DATE: 20210303
